FAERS Safety Report 13307248 (Version 1)
Quarter: 2017Q1

REPORT INFORMATION
  Report Type: Spontaneous
  Country: US (occurrence: US)
  Receive Date: 20170308
  Receipt Date: 20170308
  Transmission Date: 20170428
  Serious: No
  Sender: FDA-Public Use
  Company Number: US-PFIZER INC-2017099013

PATIENT
  Sex: Female
  Weight: 68 kg

DRUGS (1)
  1. NEURONTIN [Suspect]
     Active Substance: GABAPENTIN
     Indication: NEURALGIA
     Dosage: UNK

REACTIONS (6)
  - Thinking abnormal [Unknown]
  - Aggression [Unknown]
  - Product use issue [Unknown]
  - Depression [Unknown]
  - Affective disorder [Unknown]
  - Libido increased [Unknown]

NARRATIVE: CASE EVENT DATE: 2002
